FAERS Safety Report 10173299 (Version 1)
Quarter: 2014Q2

REPORT INFORMATION
  Report Type: Spontaneous
  Country: US (occurrence: None)
  Receive Date: 20140415
  Receipt Date: 20140415
  Transmission Date: 20141212
  Serious: Yes (Hospitalization)
  Sender: FDA-Public Use
  Company Number: ALL1-2013-09006

PATIENT
  Age: 19 Year
  Sex: Female
  Weight: 63.5 kg

DRUGS (2)
  1. VYVANSE [Suspect]
     Indication: ATTENTION DEFICIT/HYPERACTIVITY DISORDER
     Dosage: 30 MG, 1X/DAY:QD, ORAL
     Route: 048
     Dates: start: 2008
  2. MULTI-VIT (VITAMINS NOS) [Concomitant]

REACTIONS (8)
  - Depression [None]
  - Drug withdrawal syndrome [None]
  - Disturbance in attention [None]
  - Drug withdrawal headache [None]
  - Appetite disorder [None]
  - Abdominal pain [None]
  - Somnolence [None]
  - Drug dose omission [None]
